FAERS Safety Report 10074253 (Version 1)
Quarter: 2014Q2

REPORT INFORMATION
  Report Type: Spontaneous
  Country: US (occurrence: US)
  Receive Date: 20140411
  Receipt Date: 20140411
  Transmission Date: 20141212
  Serious: No
  Sender: FDA-Public Use
  Company Number: US-SANOFI-AVENTIS-2013SA038964

PATIENT
  Age: 56 Year
  Sex: Male

DRUGS (2)
  1. ALLEGRA D [Suspect]
     Indication: HYPERSENSITIVITY
     Dosage: DOSE:60/120MG
     Route: 048
     Dates: end: 20130411
  2. IBUPROFEN [Concomitant]

REACTIONS (3)
  - Micturition urgency [Not Recovered/Not Resolved]
  - Bladder pain [Not Recovered/Not Resolved]
  - Urinary tract disorder [Not Recovered/Not Resolved]
